FAERS Safety Report 7930567-8 (Version None)
Quarter: 2011Q4

REPORT INFORMATION
  Report Type: 
  Country: None (occurrence: None)
  Receive Date: 20111121
  Receipt Date: 20111107
  Transmission Date: 20120403
  Serious: Yes (Hospitalization)
  Sender: FDA-Public Use
  Company Number: NL-MEDIMMUNE-MEDI-0013859

PATIENT
  Sex: Male
  Weight: 3.4 kg

DRUGS (2)
  1. SYNAGIS [Suspect]
     Route: 030
  2. SYNAGIS [Suspect]
     Indication: PREMATURE BABY
     Route: 030
     Dates: start: 20110922, end: 20111018

REACTIONS (3)
  - MALAISE [None]
  - ABDOMINAL DISTENSION [None]
  - PYREXIA [None]
